FAERS Safety Report 8429322-4 (Version None)
Quarter: 2012Q2

REPORT INFORMATION
  Report Type: 
  Country: None (occurrence: None)
  Receive Date: 20120612
  Receipt Date: 20120608
  Transmission Date: 20120825
  Serious: Yes (Other)
  Sender: FDA-Public Use
  Company Number: PHEH2012US008184

PATIENT
  Sex: Male

DRUGS (8)
  1. ALPRAZOLAM [Concomitant]
     Dosage: 0.5 MG, QD
  2. PRAVASTATIN [Concomitant]
     Dosage: 10 MG, QD
  3. PROZAC [Concomitant]
     Dosage: 16 MG, UNK
  4. ASPIRIN [Concomitant]
     Dosage: 80 MG, QD
  5. FISH OIL [Concomitant]
  6. DIOVAN [Suspect]
     Dosage: 160 MG, BID
  7. DIOVAN [Suspect]
     Dosage: 160 MG, QD
  8. WELLBUTRIN [Concomitant]
     Dosage: 100 MG, UNK

REACTIONS (3)
  - DEPRESSION [None]
  - ANXIETY [None]
  - BLOOD PRESSURE INCREASED [None]
